FAERS Safety Report 9253392 (Version 3)
Quarter: 2014Q2

REPORT INFORMATION
  Report Type: Spontaneous
  Country: US (occurrence: US)
  Receive Date: 20130425
  Receipt Date: 20140523
  Transmission Date: 20141212
  Serious: Yes (Disabling, Other)
  Sender: FDA-Public Use
  Company Number: US-ASTRAZENECA-2013SE27430

PATIENT
  Age: 19465 Day
  Sex: Female
  Weight: 59.9 kg

DRUGS (5)
  1. NEXIUM [Suspect]
     Indication: GASTROOESOPHAGEAL REFLUX DISEASE
     Dosage: ONCE
     Route: 048
  2. NEXIUM [Suspect]
     Indication: GASTROOESOPHAGEAL REFLUX DISEASE
     Route: 048
     Dates: start: 2004, end: 2014
  3. PRILOSEC [Suspect]
     Route: 048
  4. PREMARIN [Concomitant]
     Indication: HOT FLUSH
  5. TRAMADOL HCL [Concomitant]

REACTIONS (7)
  - Patella fracture [Unknown]
  - Fall [Unknown]
  - Osteoporosis [Unknown]
  - Bone disorder [Unknown]
  - Osteopenia [Unknown]
  - Calcium deficiency [Unknown]
  - Vitamin D deficiency [Unknown]
